FAERS Safety Report 20861919 (Version 4)
Quarter: 2022Q4

REPORT INFORMATION
  Report Type: Spontaneous
  Country: US (occurrence: US)
  Receive Date: 20220523
  Receipt Date: 20221121
  Transmission Date: 20230113
  Serious: No
  Sender: FDA-Public Use
  Company Number: US-PHARMING-PHAUS2022000337

PATIENT

DRUGS (4)
  1. RUCONEST [Suspect]
     Active Substance: HUMAN C1-ESTERASE INHIBITOR
     Indication: Hereditary angioedema
     Dosage: 4200 IU, AS NEEDED
     Route: 042
     Dates: start: 20220303
  2. RUCONEST [Suspect]
     Active Substance: HUMAN C1-ESTERASE INHIBITOR
     Indication: Hereditary angioedema
     Dosage: UNK
  3. RUCONEST [Suspect]
     Active Substance: HUMAN C1-ESTERASE INHIBITOR
     Indication: Hereditary angioedema
     Dosage: 4200 IU, AS NEEDED
     Route: 042
  4. RUCONEST [Suspect]
     Active Substance: HUMAN C1-ESTERASE INHIBITOR
     Dosage: 4200 IU, AS NEEDED
     Dates: start: 202202

REACTIONS (3)
  - Maternal exposure during pregnancy [Unknown]
  - Maternal exposure during breast feeding [Unknown]
  - Product use in unapproved indication [Unknown]
